FAERS Safety Report 14767618 (Version 4)
Quarter: 2018Q4

REPORT INFORMATION
  Report Type: Spontaneous
  Country: US (occurrence: US)
  Receive Date: 20180417
  Receipt Date: 20181126
  Transmission Date: 20190204
  Serious: No
  Sender: FDA-Public Use
  Company Number: US-PFIZER INC-2018156094

PATIENT
  Age: 50 Year
  Sex: Female
  Weight: 119 kg

DRUGS (18)
  1. DOCETAXEL SANDOZ [Suspect]
     Active Substance: DOCETAXEL
     Indication: BREAST CANCER FEMALE
     Dosage: 233-234 CYCLIC (04 CYCLES)
     Dates: start: 20140523, end: 20141114
  2. DOCETAXEL. [Suspect]
     Active Substance: DOCETAXEL
     Indication: BREAST CANCER FEMALE
     Dosage: 233-234 CYCLIC (04 CYCLES)
     Dates: start: 20140523, end: 20141114
  3. ADRIAMYCIN [Concomitant]
     Active Substance: DOXORUBICIN HYDROCHLORIDE
     Dosage: CYCLIC (02CYCLE) OUT OF 4 CYCLES
     Dates: start: 20141003
  4. HYDROCODONE [Concomitant]
     Active Substance: HYDROCODONE
     Dosage: UNK
     Dates: start: 2014, end: 2014
  5. NEOSAR [Concomitant]
     Active Substance: CYCLOPHOSPHAMIDE
     Dosage: CYCLIC (02 CYCLE) OUT OF 4 CYCLES
     Dates: start: 20141003
  6. ADRIAMYCIN [Concomitant]
     Active Substance: DOXORUBICIN HYDROCHLORIDE
     Indication: CHEMOTHERAPY
     Dosage: CYCLIC (01 CYCLE) OUT OF 4 CYCLES
     Dates: start: 20140523
  7. DOXIL [Concomitant]
     Active Substance: DOXORUBICIN HYDROCHLORIDE
     Indication: CHEMOTHERAPY
     Dosage: UNK
  8. NEOSAR [Concomitant]
     Active Substance: CYCLOPHOSPHAMIDE
     Dosage: CYCLIC (03 CYCLE) OUT OF 4 CYCLES
     Dates: start: 20141024
  9. ZOFRAN [Concomitant]
     Active Substance: ONDANSETRON HYDROCHLORIDE
     Dosage: UNK
  10. NEXIUM [Concomitant]
     Active Substance: ESOMEPRAZOLE MAGNESIUM
     Dosage: UNK
  11. DOCETAXEL SANOFI [Suspect]
     Active Substance: DOCETAXEL
     Indication: BREAST CANCER FEMALE
     Dosage: 233-234 CYCLIC (04 CYCLES)
     Dates: start: 20140523, end: 20141114
  12. TREXALL [Concomitant]
     Active Substance: METHOTREXATE SODIUM
     Dosage: UNK
     Dates: start: 20131004, end: 20150220
  13. NEOSAR [Concomitant]
     Active Substance: CYCLOPHOSPHAMIDE
     Indication: CHEMOTHERAPY
     Dosage: CYCLIC (01 CYCLE) OUT OF 4 CYCLES
     Dates: start: 20140523
  14. NEOSAR [Concomitant]
     Active Substance: CYCLOPHOSPHAMIDE
     Dosage: CYCLIC (034CYCLE) OUT OF 4 CYCLES
     Dates: start: 20141114
  15. ADRIAMYCIN [Concomitant]
     Active Substance: DOXORUBICIN HYDROCHLORIDE
     Dosage: CYCLIC (03 CYCLE) OUT OF 4 CYCLES
     Dates: start: 20141024
  16. FOLVITE [Concomitant]
     Active Substance: FOLIC ACID
     Dosage: 1 MG, UNK (180 TABLET)
     Dates: start: 20130823, end: 20150426
  17. ADRIAMYCIN [Concomitant]
     Active Substance: DOXORUBICIN HYDROCHLORIDE
     Dosage: CYCLIC (04 CYCLE) OUT OF 4 CYCLES
     Dates: start: 20141114
  18. PHENERGAN [Concomitant]
     Active Substance: PROMETHAZINE HYDROCHLORIDE
     Dosage: UNK

REACTIONS (5)
  - Madarosis [Recovered/Resolved]
  - Hair texture abnormal [Recovered/Resolved]
  - Hair colour changes [Recovered/Resolved]
  - Hair disorder [Recovered/Resolved]
  - Alopecia [Recovered/Resolved]

NARRATIVE: CASE EVENT DATE: 20140530
